FAERS Safety Report 6135425-X (Version None)
Quarter: 2009Q1

REPORT INFORMATION
  Report Type: 
  Country: None (occurrence: None)
  Receive Date: 20090327
  Receipt Date: 20090319
  Transmission Date: 20090719
  Serious: No
  Sender: FDA-Public Use
  Company Number: US-ELI_LILLY_AND_COMPANY-US200903005473

PATIENT
  Sex: Female

DRUGS (4)
  1. CYMBALTA [Suspect]
     Dosage: 60 MG, UNK
     Route: 048
     Dates: start: 20080918, end: 20090312
  2. DARVOCET-N 100 [Concomitant]
     Indication: BACK PAIN
     Dosage: 60 MG, AS NEEDED
     Route: 048
  3. VICODIN [Concomitant]
     Indication: BACK PAIN
     Dosage: 40 MG, AS NEEDED
     Route: 048
  4. FLEXERIL [Concomitant]
     Dosage: 1 D/F, AS NEEDED
     Route: 048

REACTIONS (1)
  - LIVER FUNCTION TEST ABNORMAL [None]
